FAERS Safety Report 5101945-X (Version None)
Quarter: 2006Q3

REPORT INFORMATION
  Report Type: 
  Country: None (occurrence: None)
  Receive Date: 20060907
  Receipt Date: 20060830
  Transmission Date: 20061208
  Serious: Yes (Other)
  Sender: FDA-Public Use
  Company Number: 2006105338

PATIENT
  Age: 24 Year
  Sex: Male

DRUGS (1)
  1. GEODON [Suspect]
     Indication: DRUG USE FOR UNKNOWN INDICATION
     Dosage: (160 MG)

REACTIONS (3)
  - HALLUCINATION [None]
  - PARANOIA [None]
  - THINKING ABNORMAL [None]
